FAERS Safety Report 5283002-5 (Version None)
Quarter: 2007Q1

REPORT INFORMATION
  Report Type: 
  Country: None (occurrence: None)
  Receive Date: 20070327
  Receipt Date: 20070321
  Transmission Date: 20070707
  Serious: Yes (Death, Life-Threatening)
  Sender: FDA-Public Use
  Company Number: 2006S1000054

PATIENT
  Age: 2 Day
  Sex: Female

DRUGS (10)
  1. NITRIC OXIDE [Suspect]
     Indication: LUNG DISORDER
     Dosage: 5 PPM; INH
     Route: 055
     Dates: start: 20060318, end: 20060319
  2. NITRIC OXIDE [Suspect]
     Indication: PROPHYLAXIS
     Dosage: 5 PPM; INH
     Route: 055
     Dates: start: 20060318, end: 20060319
  3. CEFOTAXIME SODIUM [Concomitant]
  4. AMPICILLIN [Concomitant]
  5. GENTAMICIN [Concomitant]
  6. AMPHOTERICIN B [Concomitant]
  7. SODIUM BICARBONATE IN PLASTIC CONTAINER [Concomitant]
  8. SUPRARENIN INJ [Concomitant]
  9. DEXAMETHASONE TAB [Concomitant]
  10. BOVINE SURFACTANT (NO PREF. NAME) [Concomitant]

REACTIONS (7)
  - BRADYCARDIA NEONATAL [None]
  - EMPHYSEMA [None]
  - INTRAVENTRICULAR HAEMORRHAGE NEONATAL [None]
  - LUNG HYPERINFLATION [None]
  - NEONATAL RESPIRATORY ACIDOSIS [None]
  - NEONATAL RESPIRATORY FAILURE [None]
  - OXYGEN SATURATION DECREASED [None]
